FAERS Safety Report 22783736 (Version 10)
Quarter: 2023Q4

REPORT INFORMATION
  Report Type: Spontaneous
  Country: FR (occurrence: FR)
  Receive Date: 20230803
  Receipt Date: 20231002
  Transmission Date: 20240110
  Serious: No
  Sender: FDA-Public Use
  Company Number: FR-BRISTOL-MYERS SQUIBB COMPANY-2023-106631

PATIENT
  Age: 79 Year
  Sex: Female

DRUGS (9)
  1. KENACORT [Suspect]
     Active Substance: TRIAMCINOLONE
     Indication: Tendonitis
     Dosage: FREQ : 2 INJECTIONS
     Route: 030
     Dates: start: 20230726, end: 20230726
  2. KENACORT [Suspect]
     Active Substance: TRIAMCINOLONE
     Indication: Periarthritis
  3. KEPPRA [Concomitant]
     Active Substance: LEVETIRACETAM
     Indication: Product used for unknown indication
  4. LAMICTAL [Concomitant]
     Active Substance: LAMOTRIGINE
     Indication: Product used for unknown indication
  5. ROSUVASTATIN [Concomitant]
     Active Substance: ROSUVASTATIN
     Indication: Product used for unknown indication
  6. LEVOTHYROXINE [Concomitant]
     Active Substance: LEVOTHYROXINE
     Indication: Product used for unknown indication
  7. PROPRANOLOL [Concomitant]
     Active Substance: PROPRANOLOL HYDROCHLORIDE
     Indication: Product used for unknown indication
  8. CANDESARTAN [Concomitant]
     Active Substance: CANDESARTAN
     Indication: Product used for unknown indication
  9. IOPAMIDOL [Concomitant]
     Active Substance: IOPAMIDOL
     Indication: Product used for unknown indication
     Route: 030
     Dates: start: 20230726, end: 20230726

REACTIONS (3)
  - Arthralgia [Recovered/Resolved]
  - Off label use [Unknown]
  - Motor dysfunction [Recovered/Resolved]

NARRATIVE: CASE EVENT DATE: 20230726
